FAERS Safety Report 15119024 (Version 1)
Quarter: 2018Q3

REPORT INFORMATION
  Report Type: Spontaneous
  Country: TW (occurrence: TW)
  Receive Date: 20180709
  Receipt Date: 20180709
  Transmission Date: 20181010
  Serious: Yes (Other)
  Sender: FDA-Public Use
  Company Number: TW-LUPIN PHARMACEUTICALS INC.-2018-04004

PATIENT
  Age: 65 Year
  Sex: Male

DRUGS (2)
  1. METRONIDAZOLE. [Suspect]
     Active Substance: METRONIDAZOLE
     Indication: ANAL ABSCESS
     Dosage: UNK
     Route: 065
     Dates: start: 201612
  2. CEFTIBUTEN. [Concomitant]
     Active Substance: CEFTIBUTEN
     Indication: ANAL ABSCESS
     Dosage: UNK
     Route: 065
     Dates: start: 201612

REACTIONS (1)
  - Toxic encephalopathy [Recovered/Resolved]
